FAERS Safety Report 7397170-2 (Version None)
Quarter: 2011Q2

REPORT INFORMATION
  Report Type: 
  Country: None (occurrence: None)
  Receive Date: 20110406
  Receipt Date: 20110331
  Transmission Date: 20111010
  Serious: Yes (Disabling)
  Sender: FDA-Public Use
  Company Number: B0710776A

PATIENT
  Sex: Male
  Weight: 51 kg

DRUGS (6)
  1. VEPESID [Suspect]
     Indication: STEM CELL TRANSPLANT
     Dosage: 250MGM2 PER DAY
     Route: 042
     Dates: start: 20100112, end: 20100114
  2. GRAN [Concomitant]
     Dates: start: 20100121, end: 20100126
  3. BETAMETHASONE [Concomitant]
     Dosage: 8MG PER DAY
     Dates: start: 20100115, end: 20100116
  4. ALKERAN [Suspect]
     Indication: STEM CELL TRANSPLANT
     Dosage: 70MGM2 PER DAY
     Route: 042
     Dates: start: 20100115, end: 20100116
  5. CARBOPLATIN [Suspect]
     Indication: STEM CELL TRANSPLANT
     Dates: start: 20100112, end: 20100114
  6. KYTRIL [Concomitant]
     Dosage: 6MG PER DAY
     Dates: start: 20100115, end: 20100116

REACTIONS (2)
  - PYREXIA [None]
  - C-REACTIVE PROTEIN INCREASED [None]
